FAERS Safety Report 23544634 (Version 11)
Quarter: 2025Q3

REPORT INFORMATION
  Report Type: Spontaneous
  Country: US (occurrence: US)
  Receive Date: 20240220
  Receipt Date: 20250909
  Transmission Date: 20251020
  Serious: Yes (Hospitalization, Other)
  Sender: PFIZER
  Company Number: US-PFIZER INC-202101715634

PATIENT
  Age: 96 Year
  Sex: Female
  Weight: 61.23 kg

DRUGS (4)
  1. PREMARIN [Suspect]
     Active Substance: ESTROGENS, CONJUGATED
     Indication: Bladder spasm
     Dosage: 0.5 G, 2X/WEEK
     Route: 067
  2. PREMARIN [Suspect]
     Active Substance: ESTROGENS, CONJUGATED
     Indication: Pain
     Dosage: 5 MG, 2X/WEEK
     Route: 067
     Dates: start: 2022
  3. PREMARIN [Suspect]
     Active Substance: ESTROGENS, CONJUGATED
     Indication: Hormone level abnormal
  4. PREMARIN [Suspect]
     Active Substance: ESTROGENS, CONJUGATED
     Dosage: 0.6 MG, 2X/WEEK
     Route: 067

REACTIONS (5)
  - Insomnia [Unknown]
  - Bladder disorder [Unknown]
  - Fatigue [Unknown]
  - Off label use [Unknown]
  - Drug effective for unapproved indication [Unknown]
